FAERS Safety Report 18988414 (Version 1)
Quarter: 2021Q1

REPORT INFORMATION
  Report Type: Spontaneous
  Country: US (occurrence: US)
  Receive Date: 20210309
  Receipt Date: 20210309
  Transmission Date: 20210420
  Serious: No
  Sender: FDA-Public Use
  Company Number: US-SUNOVION-2021SUN000593

PATIENT
  Age: 51 Year
  Sex: Female

DRUGS (1)
  1. LONHALA MAGNAIR [Suspect]
     Active Substance: GLYCOPYRROLATE
     Dosage: 25 ?G, BID
     Route: 055

REACTIONS (5)
  - Therapy cessation [Unknown]
  - Migraine [Unknown]
  - Rhinitis [Unknown]
  - Pharyngitis [Unknown]
  - Ear infection [Unknown]
